FAERS Safety Report 12157451 (Version 1)
Quarter: 2016Q1

REPORT INFORMATION
  Report Type: Spontaneous
  Country: US (occurrence: US)
  Receive Date: 20160308
  Receipt Date: 20160308
  Transmission Date: 20160526
  Serious: No
  Sender: FDA-Public Use
  Company Number: US-HORIZON-ACT-0048-2016

PATIENT
  Age: 21 Year
  Sex: Male

DRUGS (3)
  1. TYLENOL [Concomitant]
     Active Substance: ACETAMINOPHEN
     Indication: PRODUCT USED FOR UNKNOWN INDICATION
  2. ACTIMMUNE [Suspect]
     Active Substance: INTERFERON GAMMA-1B
     Indication: IMMUNODEFICIENCY
     Dosage: 98 ?G THREE TIMES WEEKLY
     Route: 058
     Dates: start: 201508
  3. SIROLIMUS. [Concomitant]
     Active Substance: SIROLIMUS
     Indication: BACTERIAL INFECTION

REACTIONS (5)
  - Headache [Unknown]
  - Sluggishness [Unknown]
  - Bacterial infection [Recovered/Resolved]
  - Influenza like illness [Unknown]
  - Off label use [Unknown]
